FAERS Safety Report 4960151-X (Version None)
Quarter: 2006Q1

REPORT INFORMATION
  Report Type: 
  Country: None (occurrence: None)
  Receive Date: 20060331
  Receipt Date: 20060323
  Transmission Date: 20060701
  Serious: Yes (Other)
  Sender: FDA-Public Use
  Company Number: IT-ABBOTT-06P-083-0328943-00

PATIENT
  Age: 15 Year
  Sex: Male

DRUGS (5)
  1. VALPROIC ACID [Suspect]
     Indication: EPILEPSY
     Dosage: GRADUALLY INCREASING DOSES
     Route: 048
     Dates: start: 19920101, end: 20020101
  2. VALPROIC ACID [Suspect]
     Indication: SIMPLE PARTIAL SEIZURES
     Route: 048
     Dates: start: 20020101, end: 20040101
  3. VALPROIC ACID [Suspect]
     Indication: PARTIAL SEIZURES
     Dosage: REDUCED TO A MINIMAL DOSAGE
     Route: 048
  4. VALPROIC ACID [Suspect]
     Indication: TONIC CONVULSION
  5. PHENOBARBITAL TAB [Concomitant]
     Indication: EPILEPSY
     Dosage: UNKNOWN
     Route: 048

REACTIONS (2)
  - GLYCOSURIA [None]
  - RENAL TUBULAR DISORDER [None]
